FAERS Safety Report 7042747-7 (Version None)
Quarter: 2010Q4

REPORT INFORMATION
  Report Type: 
  Country: None (occurrence: None)
  Receive Date: 20101013
  Receipt Date: 20100301
  Transmission Date: 20110411
  Serious: No
  Sender: FDA-Public Use
  Company Number: US-ASTRAZENECA-2010SE08885

PATIENT
  Sex: Male
  Weight: 79.4 kg

DRUGS (3)
  1. SYMBICORT [Suspect]
     Indication: CHRONIC OBSTRUCTIVE PULMONARY DISEASE
     Dosage: 160/4.5 UG TWO PUFFS TWO TIMES A DAY
     Route: 055
     Dates: start: 20091201
  2. TOPROL-XL [Concomitant]
  3. MULTI-VITAMINS [Concomitant]

REACTIONS (1)
  - DRY EYE [None]
